FAERS Safety Report 24690123 (Version 1)
Quarter: 2024Q4

REPORT INFORMATION
  Report Type: Spontaneous
  Country: US (occurrence: None)
  Receive Date: 20241203
  Receipt Date: 20241203
  Transmission Date: 20250115
  Serious: Yes (Hospitalization)
  Sender: Public
  Company Number: None

PATIENT
  Age: 73 Year
  Sex: Female
  Weight: 76.5 kg

DRUGS (2)
  1. XELODA [Suspect]
     Active Substance: CAPECITABINE
     Dates: end: 20241108
  2. ELOXATIN [Suspect]
     Active Substance: OXALIPLATIN
     Dates: end: 20241106

REACTIONS (7)
  - Nausea [None]
  - Vomiting [None]
  - Diarrhoea [None]
  - Dehydration [None]
  - Asthenia [None]
  - Hypokalaemia [None]
  - Hypophosphataemia [None]

NARRATIVE: CASE EVENT DATE: 20241113
